FAERS Safety Report 19219724 (Version 1)
Quarter: 2021Q2

REPORT INFORMATION
  Report Type: Spontaneous
  Country: US (occurrence: US)
  Receive Date: 20210506
  Receipt Date: 20210506
  Transmission Date: 20210717
  Serious: Yes (Hospitalization, Other)
  Sender: FDA-Public Use
  Company Number: US-CIPLA LTD.-2021US03236

PATIENT

DRUGS (1)
  1. PHENTERMINE. [Suspect]
     Active Substance: PHENTERMINE
     Indication: MEDICAL DIET
     Dosage: 1 TO 2 TABLETS DAILY
     Route: 065

REACTIONS (5)
  - Congestive cardiomyopathy [Recovering/Resolving]
  - Pleural effusion [Recovering/Resolving]
  - Mitral valve incompetence [Recovering/Resolving]
  - Cardiac failure [Recovering/Resolving]
  - Tricuspid valve incompetence [Recovering/Resolving]
